FAERS Safety Report 8736632 (Version 5)
Quarter: 2013Q4

REPORT INFORMATION
  Report Type: Report from Study
  Country: JP (occurrence: JP)
  Receive Date: 20120822
  Receipt Date: 20131106
  Transmission Date: 20140711
  Serious: Yes (Hospitalization, Other)
  Sender: FDA-Public Use
  Company Number: JP-VERTEX PHARMACEUTICAL INC.-2012-019683

PATIENT
  Age: 71 Year
  Sex: Female

DRUGS (151)
  1. VX-950 (TELAPREVIR) [Suspect]
     Indication: CHRONIC HEPATITIS C
     Dosage: 1500 MG, QD
     Route: 048
     Dates: start: 20120508, end: 20120618
  2. VX-950 (TELAPREVIR) [Suspect]
     Dosage: 1000 MG, QD
     Route: 048
     Dates: start: 20120619, end: 20120625
  3. VX-950 (TELAPREVIR) [Suspect]
     Dosage: 1500 MG, QD
     Route: 048
     Dates: start: 20120626, end: 20120716
  4. VX-950 (TELAPREVIR) [Suspect]
     Dosage: 1250 MG, QD
     Route: 048
     Dates: start: 20120717, end: 20120717
  5. VX-950 (TELAPREVIR) [Suspect]
     Dosage: 1000 MG, QD
     Route: 048
     Dates: start: 20120718, end: 20120723
  6. VX-950 (TELAPREVIR) [Suspect]
     Dosage: 1500 MG, QD
     Route: 048
     Dates: start: 20120724, end: 20120730
  7. RIBAVIRIN [Suspect]
     Indication: CHRONIC HEPATITIS C
     Dosage: 400 MG, QD
     Route: 048
     Dates: start: 20120508, end: 20120528
  8. RIBAVIRIN [Suspect]
     Dosage: 200 MG, QD
     Route: 048
     Dates: start: 20120529, end: 20120730
  9. PEGINTERFERON ALFA-2B [Suspect]
     Indication: CHRONIC HEPATITIS C
     Dosage: 1.5 ?G/KG, QW
     Route: 058
     Dates: start: 20120508, end: 20120730
  10. ZOSYN [Suspect]
     Indication: ADVERSE EVENT
     Dosage: 4.5 G, QD
     Route: 042
     Dates: start: 20120814, end: 20120814
  11. ZOSYN [Suspect]
     Dosage: 13.5 G, QD
     Route: 042
     Dates: start: 20120815, end: 20120816
  12. PURSENNID [Concomitant]
     Dosage: 24 MG, QD
     Route: 048
     Dates: end: 20120812
  13. PURSENNID [Concomitant]
     Dosage: 24 MG, UNK
     Route: 048
     Dates: start: 20120803, end: 20120812
  14. KARY UNI [Concomitant]
     Dosage: UNK, PRN
     Route: 047
     Dates: end: 20120812
  15. KARY UNI [Concomitant]
     Dosage: UNK, PRN
     Route: 047
  16. MERISLON [Concomitant]
     Dosage: 18 MG, QD
     Route: 048
     Dates: end: 20120812
  17. MERISLON [Concomitant]
     Dosage: 18 UNK, UNK
     Route: 048
     Dates: start: 20120806, end: 20120812
  18. MERISLON [Concomitant]
     Dosage: 6 MG, QD
     Route: 048
  19. MERISLON [Concomitant]
     Dosage: 6 MG, QD
     Route: 048
     Dates: start: 20121011
  20. CEPHADOL [Concomitant]
     Dosage: 75 MG, QD
     Route: 048
     Dates: end: 20120812
  21. CEPHADOL [Concomitant]
     Dosage: 75 MG, QD
     Route: 048
     Dates: start: 20120806, end: 20120812
  22. CEPHADOL [Concomitant]
     Dosage: 25 MG, QD
     Route: 048
  23. CEPHADOL [Concomitant]
     Dosage: 25 MG, QW
     Route: 048
     Dates: start: 20121011
  24. EXCELASE [Concomitant]
     Dosage: 3 DF, QD
     Route: 048
     Dates: end: 20120812
  25. EXCELASE [Concomitant]
     Dosage: 3 DF, QD
     Route: 048
     Dates: start: 20120806, end: 20120812
  26. EXCELASE [Concomitant]
     Dosage: 1 DF, QD
     Route: 048
  27. EXCELASE [Concomitant]
     Dosage: 3 DF, QD
     Route: 048
     Dates: start: 20121011
  28. MUCOSOLVAN [Concomitant]
     Dosage: 45 MG, QD
     Route: 048
     Dates: end: 20120812
  29. MUCOSOLVAN [Concomitant]
     Dosage: 45 MG, QD
     Route: 048
     Dates: start: 20120806, end: 20120812
  30. MUCOSOLVAN [Concomitant]
     Dosage: 15 MG, QD
     Route: 048
  31. MUCOSOLVAN [Concomitant]
     Dosage: 45 DF, QD
     Route: 048
     Dates: start: 20121011
  32. BENZALIN [Concomitant]
     Dosage: 10 MG, QD
     Route: 048
     Dates: end: 20120520
  33. BENZALIN [Concomitant]
     Dosage: 5 MG, QD
     Route: 048
     Dates: start: 20120521, end: 20120806
  34. LOXOPROFEN [Concomitant]
     Dosage: 60 MG, QD
     Route: 048
     Dates: start: 20120508, end: 20120604
  35. LOXOPROFEN [Concomitant]
     Dosage: 120 MG, QD
     Route: 048
     Dates: start: 20120605, end: 20120809
  36. LOXOPROFEN [Concomitant]
     Dosage: 120 MG, QD
     Route: 048
     Dates: end: 20120903
  37. LOXOPROFEN [Concomitant]
     Dosage: 60 MG, QD
     Route: 048
     Dates: start: 20120904, end: 20120919
  38. MUCOSTA [Concomitant]
     Dosage: 100 MG, QD
     Route: 048
     Dates: start: 20120508, end: 20120604
  39. MUCOSTA [Concomitant]
     Dosage: 200 MG, QD
     Route: 048
     Dates: start: 20120605, end: 20120809
  40. MUCOSTA [Concomitant]
     Dosage: 200 MG, QD
     Route: 048
     Dates: end: 20120903
  41. MUCOSTA [Concomitant]
     Dosage: 100 MG, QD
     Route: 048
     Dates: start: 20120904, end: 20120919
  42. MUCOSTA [Concomitant]
     Dosage: 200 MG, QD
     Route: 048
     Dates: start: 20120920
  43. HEPAFLUSH [Concomitant]
     Dosage: 10 ML, QD
     Route: 042
     Dates: start: 20120803, end: 20120803
  44. HEPAFLUSH [Concomitant]
     Dosage: 30 ML, QD
     Route: 042
     Dates: start: 20120804, end: 20120805
  45. HEPAFLUSH [Concomitant]
     Dosage: 10 ML, QD
     Route: 042
     Dates: start: 20120806, end: 20120806
  46. ISOTONIC SODIUM CHLORIDE SOLUTION [Concomitant]
     Dosage: 50 ML, QD
     Route: 042
     Dates: start: 20120804, end: 20120807
  47. ISOTONIC SODIUM CHLORIDE SOLUTION [Concomitant]
     Dosage: 100 ML, QD
     Route: 042
     Dates: start: 20120805, end: 20120805
  48. ISOTONIC SODIUM CHLORIDE SOLUTION [Concomitant]
     Dosage: 100 ML, QD
     Route: 042
     Dates: start: 20120805, end: 20120805
  49. ISOTONIC SODIUM CHLORIDE SOLUTION [Concomitant]
     Dosage: 300 ML, QD
     Route: 042
     Dates: start: 20120806, end: 20120806
  50. ISOTONIC SODIUM CHLORIDE SOLUTION [Concomitant]
     Dosage: 300 ML, QD
     Route: 042
     Dates: start: 20120806, end: 20120808
  51. ISOTONIC SODIUM CHLORIDE SOLUTION [Concomitant]
     Dosage: 10000 ML, QD
     Route: 051
     Dates: start: 20120806, end: 20120806
  52. ISOTONIC SODIUM CHLORIDE SOLUTION [Concomitant]
     Dosage: 300 ML, QW
     Route: 042
     Dates: start: 20120807, end: 20120813
  53. ISOTONIC SODIUM CHLORIDE SOLUTION [Concomitant]
     Dosage: 50 ML, QW
     Route: 042
     Dates: start: 20120807, end: 20120807
  54. ISOTONIC SODIUM CHLORIDE SOLUTION [Concomitant]
     Dosage: 200 ML, QW
     Route: 042
     Dates: start: 20120808, end: 20120810
  55. ISOTONIC SODIUM CHLORIDE SOLUTION [Concomitant]
     Dosage: 50 ML, QD
     Route: 042
     Dates: start: 20120809, end: 20120809
  56. ISOTONIC SODIUM CHLORIDE SOLUTION [Concomitant]
     Dosage: 100 ML, QW
     Route: 051
     Dates: start: 20120814, end: 20120814
  57. ISOTONIC SODIUM CHLORIDE SOLUTION [Concomitant]
     Dosage: 14000 ML, QW
     Route: 051
     Dates: start: 20120814, end: 20120814
  58. ISOTONIC SODIUM CHLORIDE SOLUTION [Concomitant]
     Dosage: 50 ML, QD
     Route: 042
     Dates: start: 20120814, end: 20120814
  59. ISOTONIC SODIUM CHLORIDE SOLUTION [Concomitant]
     Dosage: 100 ML, QW
     Route: 042
     Dates: start: 20120814, end: 20120814
  60. ISOTONIC SODIUM CHLORIDE SOLUTION [Concomitant]
     Dosage: 300 ML, QD
     Route: 042
     Dates: start: 20120815, end: 20120816
  61. ISOTONIC SODIUM CHLORIDE SOLUTION [Concomitant]
     Dosage: 50 ML, QD
     Route: 042
     Dates: start: 20120815, end: 20120815
  62. ISOTONIC SODIUM CHLORIDE SOLUTION [Concomitant]
     Dosage: 200 ML, QD
     Route: 042
     Dates: start: 20120817, end: 20120830
  63. ISOTONIC SODIUM CHLORIDE SOLUTION [Concomitant]
     Dosage: 50 ML, QD
     Route: 042
     Dates: start: 20120818, end: 20120818
  64. ISOTONIC SODIUM CHLORIDE SOLUTION [Concomitant]
     Dosage: 100 ML, QD
     Route: 042
     Dates: start: 20120823, end: 20120823
  65. ISOTONIC SODIUM CHLORIDE SOLUTION [Concomitant]
     Dosage: 6000 ML, QD
     Route: 051
     Dates: start: 20120828, end: 20120828
  66. ISOTONIC SODIUM CHLORIDE SOLUTION [Concomitant]
     Dosage: 50 ML, QD
     Route: 042
     Dates: start: 20120828, end: 20120828
  67. ISOTONIC SODIUM CHLORIDE SOLUTION [Concomitant]
     Dosage: 20 ML, QD
     Route: 051
     Dates: start: 20120903, end: 20120903
  68. ISOTONIC SODIUM CHLORIDE SOLUTION [Concomitant]
     Dosage: 100 ML, QD
     Route: 051
     Dates: start: 20120914, end: 20120914
  69. ISOTONIC SODIUM CHLORIDE SOLUTION [Concomitant]
     Dosage: 100 ML, QD
     Route: 051
     Dates: start: 20120917, end: 20120917
  70. ISOTONIC SODIUM CHLORIDE SOLUTION [Concomitant]
     Dosage: 100 ML, QD
     Route: 051
     Dates: start: 20120919, end: 20120919
  71. ISOTONIC SODIUM CHLORIDE SOLUTION [Concomitant]
     Dosage: 100 ML, QD
     Route: 051
     Dates: start: 20120921, end: 20120921
  72. ISOTONIC SODIUM CHLORIDE SOLUTION [Concomitant]
     Dosage: 100 ML, QD
     Route: 051
     Dates: start: 20120928, end: 20120928
  73. MAGMITT [Concomitant]
     Dosage: 1980 MG, QD
     Route: 048
     Dates: start: 20120806, end: 20120810
  74. FENTANYL [Concomitant]
     Dosage: 2 ML, QD
     Route: 051
     Dates: start: 20120806, end: 20120806
  75. FENTANYL [Concomitant]
     Dosage: 10 ML, QD
     Route: 051
     Dates: start: 20120814, end: 20120814
  76. ULTIVA [Concomitant]
     Dosage: 5 MG, QD
     Route: 048
     Dates: start: 20120806, end: 20120806
  77. ULTIVA [Concomitant]
     Dosage: 5 MG, QD
     Route: 048
     Dates: start: 20120814, end: 20120814
  78. XYLOCAINE [Concomitant]
     Dosage: 30 ML, QD
     Route: 051
     Dates: start: 20120806, end: 20120806
  79. STERICLON B [Concomitant]
     Dosage: 100 ML, QD
     Route: 051
     Dates: start: 20120806, end: 20120806
  80. STERICLON B [Concomitant]
     Dosage: 100 ML, QD
     Route: 051
     Dates: start: 20120814, end: 20120814
  81. STERICLON B [Concomitant]
     Dosage: 100 ML, QD
     Route: 051
     Dates: start: 20120828, end: 20120828
  82. LACTEC [Concomitant]
     Dosage: 1 L, QD
     Route: 042
     Dates: start: 20120806, end: 20120806
  83. LACTEC [Concomitant]
     Dosage: 500 ML, QD
     Route: 042
     Dates: start: 20120814, end: 20120814
  84. LACTEC [Concomitant]
     Dosage: 500 ML, QD
     Route: 042
     Dates: start: 20120828, end: 20120828
  85. BICARBON [Concomitant]
     Dosage: 1000 ML, QD
     Route: 051
     Dates: start: 20120806, end: 20120806
  86. PHYSIO [Concomitant]
     Dosage: 1000 ML, QD
     Route: 051
     Dates: start: 20120806, end: 20120806
  87. PHYSIO [Concomitant]
     Dosage: 1500 ML, QD
     Route: 051
     Dates: start: 20120814, end: 20120814
  88. OXYGEN [Concomitant]
     Dosage: 400 L, QD
     Dates: start: 20120806, end: 20120806
  89. OXYGEN [Concomitant]
     Dosage: 800 L, QD
     Dates: start: 20120814, end: 20120814
  90. SEVOFLURANE [Concomitant]
     Dosage: 120 ML, QD
     Route: 055
     Dates: start: 20120806, end: 20120806
  91. SEVOFLURANE [Concomitant]
     Dosage: 60 ML, QD
     Route: 055
     Dates: start: 20120814, end: 20120814
  92. ESLAX [Concomitant]
     Dosage: 100 MG, QD
     Route: 051
     Dates: start: 20120806, end: 20120806
  93. ESLAX [Concomitant]
     Dosage: 100 MG, QD
     Route: 051
     Dates: start: 20120814, end: 20120814
  94. PROPOFOL [Concomitant]
     Dosage: 20 ML, QD
     Route: 051
     Dates: start: 20120806, end: 20120806
  95. ATROPINE SULPHATE [Concomitant]
     Dosage: 1 ML, QD
     Dates: start: 20120806, end: 20120806
  96. ATROPINE SULPHATE [Concomitant]
     Dosage: 1 ML, QD
     Dates: start: 20120814, end: 20120814
  97. ATROPINE SULPHATE [Concomitant]
     Dosage: 1 ML, QD
     Dates: start: 20120828, end: 20120828
  98. NEO-SYNESIN KOWA [Concomitant]
     Dosage: 1 ML, QD
     Dates: start: 20120806, end: 20120806
  99. NEO-SYNESIN KOWA [Concomitant]
     Dosage: 1 ML, QD
     Dates: start: 20120814, end: 20120814
  100. EPHEDRIN [Concomitant]
     Dosage: 1 ML, QD
     Dates: start: 20120806, end: 20120806
  101. EPHEDRIN [Concomitant]
     Dosage: 1 ML, QD
     Dates: start: 20120814, end: 20120814
  102. SEISHOKU [Concomitant]
     Dosage: 50 ML, QD
     Route: 051
     Dates: start: 20120806, end: 20120806
  103. SEISHOKU [Concomitant]
     Dosage: 50 ML, QD
     Route: 051
     Dates: start: 20120814, end: 20120814
  104. XYLOCAINE [Concomitant]
     Dosage: 20 ML, QD
     Route: 051
     Dates: start: 20120806, end: 20120806
  105. XYLOCAINE [Concomitant]
     Dosage: 20 ML, QD
     Route: 051
     Dates: start: 20120814, end: 20120814
  106. DORMICUM [Concomitant]
     Dosage: 2 ML, QD
     Route: 051
     Dates: start: 20120806, end: 20120806
  107. DORMICUM [Concomitant]
     Dosage: 2 ML, QD
     Route: 051
     Dates: start: 20120814, end: 20120814
  108. BRIDION [Concomitant]
     Dosage: 2 ML, QD
     Route: 051
     Dates: start: 20120806, end: 20120806
  109. BRIDION [Concomitant]
     Dosage: 2 ML, QD
     Route: 051
     Dates: start: 20120814, end: 20120814
  110. PENTAGIN [Concomitant]
     Dosage: 15 MG, QD
     Route: 051
     Dates: start: 20120806, end: 20120806
  111. MEROPEN [Concomitant]
     Dosage: 1500 MG, QD
     Route: 042
     Dates: start: 20120807, end: 20120813
  112. MEROPEN [Concomitant]
     Dosage: 0.5 G, QD
     Route: 051
     Dates: start: 20120814, end: 20120814
  113. ROPION [Concomitant]
     Dosage: 5 ML, QD
     Route: 042
     Dates: start: 20120807, end: 20120807
  114. ROPION [Concomitant]
     Dosage: 5 ML, QD
     Route: 042
     Dates: start: 20120809, end: 20120809
  115. ROPION [Concomitant]
     Dosage: 50 MG, QD
     Route: 051
     Dates: start: 20120814, end: 20120814
  116. ROPION [Concomitant]
     Dosage: 5 ML, QD
     Route: 042
     Dates: start: 20120814, end: 20120814
  117. ROPION [Concomitant]
     Dosage: 5 ML, QD
     Route: 042
     Dates: start: 20120815, end: 20120815
  118. ROPION [Concomitant]
     Dosage: 5 ML, QD
     Route: 042
     Dates: start: 20120818, end: 20120818
  119. ROPION [Concomitant]
     Dosage: 5 ML, QD
     Route: 042
     Dates: start: 20120828, end: 20120828
  120. GENTACIN [Concomitant]
     Dosage: UNK UNK, QD
     Route: 061
     Dates: start: 20120830, end: 20120830
  121. POPIYODON [Concomitant]
     Dosage: 250 ML, QD
     Route: 051
     Dates: start: 20120814, end: 20120814
  122. POPIYODON [Concomitant]
     Dosage: 250 ML, QD
     Route: 051
     Dates: start: 20120828, end: 20120828
  123. GERMITOL [Concomitant]
     Dosage: 100 ML, QD
     Route: 051
     Dates: start: 20120814, end: 20120814
  124. VEEN-F [Concomitant]
     Dosage: 1500 ML, QD
     Route: 051
     Dates: start: 20120814, end: 20120814
  125. VEEN-F [Concomitant]
     Dosage: 500 ML, QD
     Route: 051
     Dates: start: 20120828, end: 20120828
  126. SALINHES [Concomitant]
     Dosage: 1000 ML, QD
     Route: 051
     Dates: start: 20120814, end: 20120814
  127. KENKETSU ALBUMIN [Concomitant]
     Dosage: 750 ML, QD
     Route: 051
     Dates: start: 20120814, end: 20120814
  128. MARCAIN [Concomitant]
     Dosage: 4 ML, QD
     Route: 051
     Dates: start: 20120814, end: 20120814
  129. XYLOCAINE SYRINGE [Concomitant]
     Dosage: 10 ML, QD
     Route: 051
     Dates: start: 20120814, end: 20120814
  130. XYLOCAINE SYRINGE [Concomitant]
     Dosage: 10 ML, QD
     Route: 051
     Dates: start: 20120828, end: 20120828
  131. XYLOCAINE POLYAMP [Concomitant]
     Dosage: 5 ML, QD
     Route: 051
     Dates: start: 20120814, end: 20120814
  132. XYLOCAINE POLYAMP [Concomitant]
     Dosage: 10 ML, QD
     Route: 051
     Dates: start: 20120823, end: 20120823
  133. XYLOCAINE POLYAMP [Concomitant]
     Dosage: 10 ML, QD
     Route: 051
     Dates: start: 20120912, end: 20120912
  134. ATARAX-P [Concomitant]
     Dosage: 1 ML, QD
     Route: 051
     Dates: start: 20120814, end: 20120814
  135. ISOZOL [Concomitant]
     Dosage: 500 MG, QD
     Route: 051
     Dates: start: 20120814, end: 20120814
  136. LASIX [Concomitant]
     Dosage: 20 MG, QD
     Route: 051
     Dates: start: 20120814, end: 20120814
  137. CONCENTRATED HUMAN RED BLOOD CELLS [Concomitant]
     Dosage: 800 ML, QD
     Route: 051
     Dates: start: 20120814, end: 20120814
  138. POPIYODON [Concomitant]
     Dosage: 5 ML, QD
     Route: 051
     Dates: start: 20120823, end: 20120823
  139. POPIYODON [Concomitant]
     Dosage: 10 ML, QD
     Route: 051
     Dates: start: 20120831, end: 20120831
  140. POPIYODON [Concomitant]
     Dosage: 10 ML, QD
     Route: 051
     Dates: start: 20120903, end: 20120903
  141. POPIYODON [Concomitant]
     Dosage: 10 ML, QD
     Route: 051
     Dates: start: 20120905, end: 20120905
  142. POPIYODON [Concomitant]
     Dosage: 10 ML, QD
     Route: 051
     Dates: start: 20120907, end: 20120907
  143. POPIYODON [Concomitant]
     Dosage: 8 ML, QD
     Route: 051
     Dates: start: 20120910, end: 20120910
  144. POPIYODON [Concomitant]
     Dosage: 10 ML, QD
     Route: 051
     Dates: start: 20120910, end: 20120910
  145. POPIYODON [Concomitant]
     Dosage: 8 ML, QD
     Route: 051
     Dates: start: 20120924, end: 20120924
  146. POPIYODON [Concomitant]
     Dosage: 10 ML, QD
     Route: 051
     Dates: start: 20120926, end: 20120926
  147. SOFRATULLE [Concomitant]
     Dosage: 2 SHEET, QD
     Route: 051
     Dates: start: 20120828, end: 20120828
  148. MARCAIN [Concomitant]
     Dosage: 4 ML, QD
     Route: 051
     Dates: start: 20120828, end: 20120828
  149. CELECOX [Concomitant]
     Dosage: 200 MG, QD
     Route: 048
     Dates: start: 20120920
  150. ISODINE [Concomitant]
     Dosage: 30 ML, QD
     Route: 051
     Dates: start: 20120930, end: 20120930
  151. LOXONIN [Concomitant]
     Dosage: 100 MG, QD
     Route: 061
     Dates: start: 20121013

REACTIONS (10)
  - Blood pressure decreased [Recovered/Resolved]
  - Subcutaneous abscess [Unknown]
  - Gas gangrene [Recovered/Resolved]
  - Necrotising fasciitis [Recovered/Resolved]
  - Pyrexia [Recovered/Resolved]
  - Haemoglobin decreased [Recovered/Resolved]
  - Red blood cell count decreased [Recovered/Resolved]
  - Vulvitis [Recovered/Resolved]
  - Enterostomy [Recovered/Resolved]
  - Ileus [Recovered/Resolved]
